FAERS Safety Report 5281785-1 (Version None)
Quarter: 2007Q1

REPORT INFORMATION
  Report Type: 
  Country: None (occurrence: None)
  Receive Date: 20070330
  Receipt Date: 20070321
  Transmission Date: 20070707
  Serious: Yes (Hospitalization)
  Sender: FDA-Public Use
  Company Number: BE-ROCHE-387541

PATIENT
  Age: 44 Year
  Sex: Female

DRUGS (25)
  1. MYCOPHENOLATE MOFETIL [Suspect]
     Route: 042
     Dates: start: 20041109, end: 20041109
  2. MYCOPHENOLATE MOFETIL [Suspect]
     Route: 042
     Dates: start: 20041110, end: 20041113
  3. MYCOPHENOLATE MOFETIL [Suspect]
     Route: 048
     Dates: start: 20041114
  4. TACROLIMUS [Suspect]
     Dosage: DOSAGE ADJUSTED TO REACH PREDEFINED TARGET LEVELS.
     Route: 048
     Dates: start: 20041109, end: 20041126
  5. TACROLIMUS [Suspect]
     Route: 048
     Dates: start: 20041127, end: 20041127
  6. TACROLIMUS [Suspect]
     Route: 048
     Dates: start: 20041128
  7. METHYLPREDNISOLONE 16MG TAB [Suspect]
     Dosage: DOSAGE TAPERED ACCORDING TO LOCAL PROTOCOL.
     Route: 065
     Dates: start: 20041109
  8. CEFOTAXIM [Concomitant]
     Indication: INFECTION PROPHYLAXIS
     Dates: start: 20041109, end: 20041110
  9. AMPICILLINE [Concomitant]
     Indication: INFECTION PROPHYLAXIS
     Dates: start: 20041109, end: 20041110
  10. TOBRAMYCIN [Concomitant]
     Indication: INFECTION PROPHYLAXIS
     Dates: start: 20041109, end: 20041109
  11. AMFOTERICINE B [Concomitant]
     Indication: INFECTION PROPHYLAXIS
     Dates: start: 20041109, end: 20041109
  12. NYSTATINE [Concomitant]
     Indication: INFECTION PROPHYLAXIS
     Dates: start: 20041109, end: 20050315
  13. RANITIDINE [Concomitant]
     Indication: PROPHYLAXIS
     Dates: start: 20041109, end: 20050513
  14. MAGNESIUMSULFAT [Concomitant]
     Dosage: STOPPED ON 10 NOVEMBER 2004, RESTARTED ON 12 NOVEMBER 2004. STOPPED ON 12 NOVEMBER 2004, RESTARTED +
     Dates: start: 20041109, end: 20041115
  15. GANCICLOVIR [Concomitant]
     Indication: INFECTION PROPHYLAXIS
     Dates: start: 20041109, end: 20050225
  16. CHLOORHEXIDINEDIGLUCONAAT [Concomitant]
     Indication: INFECTION PROPHYLAXIS
     Dates: start: 20041109, end: 20041109
  17. ENOXAPARIN SODIUM [Concomitant]
     Dosage: STOPPED ON 9 NOVEMBER 2004 AND RESTARTED ON 11 NOVEMBER 2004.
     Dates: start: 20041109, end: 20041121
  18. CALCIUM CHLORIDE [Concomitant]
     Dates: start: 20041110, end: 20041111
  19. FUROSEMIDE [Concomitant]
     Indication: PROPHYLAXIS
     Dates: start: 20041111, end: 20041111
  20. TRAMADOL HCL [Concomitant]
     Indication: ABDOMINAL PAIN
     Dates: start: 20041111, end: 20041112
  21. ZOPICLON [Concomitant]
     Dates: start: 20041112, end: 20041112
  22. ACETAMINOPHEN [Concomitant]
     Indication: ABDOMINAL PAIN
     Dates: start: 20041112, end: 20041112
  23. CALCIUM GLUCONATE [Concomitant]
     Dates: start: 20041113, end: 20050313
  24. SULFAMETHOXAZOL [Concomitant]
     Indication: INFECTION PROPHYLAXIS
     Dates: start: 20041114, end: 20050225
  25. LOPERAMIDE HYDROCHLORIDE [Concomitant]
     Indication: DIARRHOEA
     Dates: start: 20041115, end: 20041116

REACTIONS (1)
  - EPILEPSY [None]
